FAERS Safety Report 17229238 (Version 3)
Quarter: 2020Q1

REPORT INFORMATION
  Report Type: Spontaneous
  Country: CN (occurrence: CN)
  Receive Date: 20200103
  Receipt Date: 20200113
  Transmission Date: 20200409
  Serious: Yes (Death, Other)
  Sender: FDA-Public Use
  Company Number: CN-ASTRAZENECA-2020SE01297

PATIENT
  Age: 59 Year
  Sex: Male
  Weight: 55 kg

DRUGS (2)
  1. IRESSA [Suspect]
     Active Substance: GEFITINIB
     Indication: NON-SMALL CELL LUNG CANCER
     Route: 048
  2. OSIMERTINIB. [Suspect]
     Active Substance: OSIMERTINIB
     Route: 048

REACTIONS (5)
  - Drug ineffective [Unknown]
  - Malignant neoplasm progression [Fatal]
  - Coma [Unknown]
  - Drug resistance [Unknown]
  - Metastases to central nervous system [Fatal]
